FAERS Safety Report 4584211-0 (Version None)
Quarter: 2005Q1

REPORT INFORMATION
  Report Type: 
  Country: None (occurrence: None)
  Receive Date: 20050216
  Receipt Date: 20050128
  Transmission Date: 20050727
  Serious: Yes (Hospitalization)
  Sender: FDA-Public Use
  Company Number: AU-GLAXOSMITHKLINE-B0370233A

PATIENT
  Age: 32 Year
  Sex: Female
  Weight: 70 kg

DRUGS (1)
  1. IMIGRAN [Suspect]
     Indication: MIGRAINE
     Dosage: 6MG SINGLE DOSE
     Route: 058
     Dates: start: 19930429

REACTIONS (2)
  - DRUG EXPOSURE DURING PREGNANCY [None]
  - INTRA-UTERINE DEATH [None]
